FAERS Safety Report 25443233 (Version 1)
Quarter: 2025Q2

REPORT INFORMATION
  Report Type: Spontaneous
  Country: GB (occurrence: GB)
  Receive Date: 20250617
  Receipt Date: 20250617
  Transmission Date: 20250717
  Serious: Yes (Disabling, Other)
  Sender: AUROBINDO
  Company Number: GB-MHRA-MED-202506022244333700-HKGZN

PATIENT
  Age: 43 Year
  Sex: Female
  Weight: 61 kg

DRUGS (4)
  1. METRONIDAZOLE [Suspect]
     Active Substance: METRONIDAZOLE
     Indication: Oophoritis
     Dosage: UNK UNK, TWO TIMES A DAY
     Route: 065
     Dates: start: 20241220, end: 20250404
  2. CEPHALEXIN [Concomitant]
     Active Substance: CEPHALEXIN
     Indication: Oophoritis
     Route: 065
     Dates: start: 20241220, end: 20250228
  3. DOXYCYCLINE [Concomitant]
     Active Substance: DOXYCYCLINE
     Indication: Oophoritis
     Route: 065
     Dates: start: 20241220, end: 20250309
  4. OFLOXACIN [Concomitant]
     Active Substance: OFLOXACIN
     Indication: Product used for unknown indication
     Route: 065
     Dates: start: 20250321, end: 20250404

REACTIONS (4)
  - Paraesthesia [Not Recovered/Not Resolved]
  - Loss of proprioception [Not Recovered/Not Resolved]
  - Memory impairment [Not Recovered/Not Resolved]
  - Dysphonia [Not Recovered/Not Resolved]

NARRATIVE: CASE EVENT DATE: 20241228
